APPROVED DRUG PRODUCT: TAGAMET HB 200
Active Ingredient: CIMETIDINE
Strength: 200MG/20ML
Dosage Form/Route: SUSPENSION;ORAL
Application: N020951 | Product #001
Applicant: GLAXOSMITHKLINE
Approved: Jul 9, 1999 | RLD: No | RS: No | Type: DISCN